FAERS Safety Report 16897241 (Version 4)
Quarter: 2020Q1

REPORT INFORMATION
  Report Type: Spontaneous
  Country: DK (occurrence: DK)
  Receive Date: 20191009
  Receipt Date: 20200127
  Transmission Date: 20200409
  Serious: Yes (Hospitalization)
  Sender: FDA-Public Use
  Company Number: DK-ROCHE-2430262

PATIENT
  Age: 57 Year
  Sex: Male

DRUGS (5)
  1. OCREVUS [Suspect]
     Active Substance: OCRELIZUMAB
     Indication: RELAPSING MULTIPLE SCLEROSIS
     Route: 042
     Dates: start: 20190910, end: 20190923
  2. MODAFINIL. [Concomitant]
     Active Substance: MODAFINIL
     Indication: NARCOLEPSY
     Dosage: STYRE
     Route: 048
     Dates: start: 20120820
  3. ENALAPRIL [Concomitant]
     Active Substance: ENALAPRIL
     Indication: HYPERTENSION
     Dosage: STYRKE 5MG
     Route: 048
     Dates: start: 20140821
  4. QUESTRAN [Suspect]
     Active Substance: CHOLESTYRAMINE
     Indication: PRODUCT USED FOR UNKNOWN INDICATION
     Route: 048
     Dates: start: 20190827, end: 20190908
  5. FLUOXETINE [Concomitant]
     Active Substance: FLUOXETINE HYDROCHLORIDE
     Indication: DEPRESSION
     Route: 048
     Dates: start: 20120820

REACTIONS (7)
  - Liver disorder [Unknown]
  - Haematemesis [Recovered/Resolved]
  - Hepatic enzyme increased [Recovered/Resolved]
  - Abdominal pain upper [Unknown]
  - Hepatitis toxic [Recovering/Resolving]
  - Alanine aminotransferase increased [Recovering/Resolving]
  - Abdominal pain [Recovering/Resolving]

NARRATIVE: CASE EVENT DATE: 20190917
